FAERS Safety Report 12961528 (Version 2)
Quarter: 2016Q4

REPORT INFORMATION
  Report Type: Report from Study
  Country: DE (occurrence: DE)
  Receive Date: 20161121
  Receipt Date: 20161130
  Transmission Date: 20170207
  Serious: Yes (Other)
  Sender: FDA-Public Use
  Company Number: DE-GILEAD-2016-0211893

PATIENT
  Sex: Male
  Weight: 75 kg

DRUGS (6)
  1. MABTHERA [Concomitant]
     Active Substance: RITUXIMAB
     Dosage: UNK
     Dates: start: 20160303, end: 20160331
  2. IDELALISIB [Suspect]
     Active Substance: IDELALISIB
     Indication: B-CELL LYMPHOMA
  3. IDELALISIB [Suspect]
     Active Substance: IDELALISIB
     Indication: CHRONIC LYMPHOCYTIC LEUKAEMIA
     Dosage: 300 MG, QD
     Route: 048
     Dates: start: 20160210
  4. CAPTOGAMMA [Concomitant]
     Indication: HYPERTONIA
     Dosage: UNK
     Dates: end: 20160427
  5. MABTHERA [Concomitant]
     Active Substance: RITUXIMAB
     Dosage: UNK
     Dates: start: 20160218, end: 20160218
  6. MABTHERA [Concomitant]
     Active Substance: RITUXIMAB
     Dosage: UNK
     Dates: start: 20160414, end: 20160414

REACTIONS (1)
  - Limb crushing injury [Unknown]

NARRATIVE: CASE EVENT DATE: 20160331
